FAERS Safety Report 14175982 (Version 1)
Quarter: 2017Q4

REPORT INFORMATION
  Report Type: Spontaneous
  Country: US (occurrence: None)
  Receive Date: 20171109
  Receipt Date: 20171109
  Transmission Date: 20180321
  Serious: Yes (Hospitalization)
  Sender: FDA-Public Use
  Company Number: None

PATIENT
  Age: 68 Year
  Sex: Male
  Weight: 134 kg

DRUGS (1)
  1. PYRIDOSTIGMINE [Suspect]
     Active Substance: PYRIDOSTIGMINE
     Indication: AUTONOMIC FAILURE SYNDROME
     Dates: start: 20171005, end: 20171020

REACTIONS (7)
  - Vomiting [None]
  - Cardiomyopathy [None]
  - Troponin increased [None]
  - Blood magnesium decreased [None]
  - Nausea [None]
  - Acute coronary syndrome [None]
  - Blood potassium decreased [None]

NARRATIVE: CASE EVENT DATE: 20171020
